FAERS Safety Report 16628650 (Version 2)
Quarter: 2019Q4

REPORT INFORMATION
  Report Type: Report from Study
  Country: US (occurrence: US)
  Receive Date: 20190725
  Receipt Date: 20191122
  Transmission Date: 20200122
  Serious: No
  Sender: FDA-Public Use
  Company Number: US-ALEXION PHARMACEUTICALS INC.-A201911080

PATIENT
  Sex: Male

DRUGS (1)
  1. ULTOMIRIS [Suspect]
     Active Substance: RAVULIZUMAB-CWVZ
     Indication: PAROXYSMAL NOCTURNAL HAEMOGLOBINURIA
     Dosage: UNK
     Route: 065
     Dates: start: 20190507

REACTIONS (5)
  - Spinal stenosis [Unknown]
  - Neuralgia [Unknown]
  - Spinal laminectomy [Recovered/Resolved]
  - Spinal osteoarthritis [Unknown]
  - Spinal decompression [Recovered/Resolved]

NARRATIVE: CASE EVENT DATE: 20191024
